FAERS Safety Report 19147864 (Version 4)
Quarter: 2021Q3

REPORT INFORMATION
  Report Type: Spontaneous
  Country: US (occurrence: US)
  Receive Date: 20210416
  Receipt Date: 20210713
  Transmission Date: 20211014
  Serious: Yes (Hospitalization, Other)
  Sender: FDA-Public Use
  Company Number: US-TEVA-2021-US-1901225

PATIENT
  Age: 62 Year
  Sex: Male
  Weight: 122.58 kg

DRUGS (19)
  1. DIOVAN HCT [Suspect]
     Active Substance: HYDROCHLOROTHIAZIDE\VALSARTAN
     Indication: HYPERTENSION
     Dosage: 1 DOSAGE FORMS DAILY; 320/25MG?DLOVAN HCT 320?25MG NOVARTIS
     Route: 048
  2. WELLBUTRIN XL [Concomitant]
     Active Substance: BUPROPION HYDROCHLORIDE
     Dosage: 300 MILLIGRAM DAILY;
     Route: 048
  3. CELEBREX [Concomitant]
     Active Substance: CELECOXIB
     Dosage: 200 MILLIGRAM DAILY;
     Route: 048
  4. COLACE [Concomitant]
     Active Substance: DOCUSATE SODIUM
     Dosage: 200 MILLIGRAM DAILY;
     Route: 048
  5. NORVASC10MG [Concomitant]
     Dosage: 10 MILLIGRAM DAILY;
     Route: 048
  6. METFORMIN [Concomitant]
     Active Substance: METFORMIN HYDROCHLORIDE
     Indication: TYPE 2 DIABETES MELLITUS
     Dosage: 8.5 ML DAILY; ONGOING
     Dates: start: 2014
  7. PROVENTIL [Concomitant]
     Active Substance: ALBUTEROL
     Indication: WHEEZING
     Dosage: 2 PUFFS, AS REQUIRED, STRENGTH 2.5MG/3ML
     Route: 055
  8. HYDRODIURIL 25MG [Concomitant]
     Dosage: 25 MILLIGRAM DAILY;
     Route: 048
  9. VALSARTAN/HYDROCHLOROTHIAZIDE AUROBINDO [Suspect]
     Active Substance: HYDROCHLOROTHIAZIDE\VALSARTAN
     Indication: HYPERTENSION
     Dosage: 1 DOSAGE FORMS DAILY; 320/25MG, VALSARTAN/HYDROCHLOROTHIAZIDE AUROBINDO PHARMA
     Route: 048
     Dates: start: 20141030, end: 20160725
  10. VAL/HCZ 320/25 QUALITEST [Suspect]
     Active Substance: HYDROCHLOROTHIAZIDE\VALSARTAN
     Indication: HYPERTENSION
     Dosage: 1 DOSAGE FORMS DAILY; 320/25MG?VAL/HCZ 320/25 QUALITEST
     Route: 048
  11. HFA VENTOLIN 90MCG [Concomitant]
     Indication: WHEEZING
     Dosage: 8 DOSAGE FORMS DAILY; 2 PUFFS AS REQUIRED
     Route: 055
  12. NORVASC [Concomitant]
     Active Substance: AMLODIPINE BESYLATE
     Dosage: 10 MILLIGRAM DAILY;
     Route: 048
  13. GLUCOTROL XL 5MG [Concomitant]
     Dosage: 5 MILLIGRAM DAILY; EXTENDED RELEASE
     Route: 048
  14. VALSARTAN W/HYDROCHLOROTHIAZIDE ACTAVIS [Suspect]
     Active Substance: HYDROCHLOROTHIAZIDE\VALSARTAN
     Indication: HYPERTENSION
     Dosage: 1 DOSAGE FORMS DAILY; 320/25MG
     Route: 048
     Dates: start: 20160318, end: 20160418
  15. APRESOLINE 10MG [Concomitant]
     Dosage: 30 MILLIGRAM DAILY;
     Route: 048
  16. VALSARTAN/HYDROCHLOROTHIAZIDE MYLAN [Suspect]
     Active Substance: HYDROCHLOROTHIAZIDE\VALSARTAN
     Indication: HYPERTENSION
     Dosage: 1 DOSAGE FORMS DAILY; 320/25MG, VALSARTAN/HYDROCHLOROTHIAZIDE MYLAN LABORATORIES
     Route: 048
     Dates: start: 20121003, end: 20150422
  17. DULCOLAX NOS [Concomitant]
     Active Substance: BISACODYL OR DOCUSATE SODIUM
     Route: 054
  18. FLONASE [Concomitant]
     Active Substance: FLUTICASONE PROPIONATE
     Indication: RHINITIS
     Dosage: 2 DOSAGE FORMS DAILY;
     Route: 055
  19. NORCO 10/325MG [Concomitant]
     Indication: PAIN
     Dosage: 10/325MG, EVERY 4 HOURS
     Route: 048

REACTIONS (1)
  - Adenocarcinoma pancreas [Recovered/Resolved]
